FAERS Safety Report 7010516-X (Version None)
Quarter: 2010Q3

REPORT INFORMATION
  Report Type: 
  Country: None (occurrence: None)
  Receive Date: 20100923
  Receipt Date: 20100914
  Transmission Date: 20110219
  Serious: Yes (Death, Hospitalization)
  Sender: FDA-Public Use
  Company Number: US-BAXTER-2010BH023604

PATIENT
  Sex: Male

DRUGS (4)
  1. DIANEAL [Suspect]
     Indication: PERITONEAL DIALYSIS
     Route: 033
  2. DIANEAL [Suspect]
     Route: 033
  3. DIANEAL [Suspect]
     Indication: PERITONEAL DIALYSIS
     Route: 033
  4. DIANEAL [Suspect]
     Route: 033

REACTIONS (3)
  - CARDIOVASCULAR INSUFFICIENCY [None]
  - PERIPHERAL VASCULAR DISORDER [None]
  - SKIN DISCOLOURATION [None]
